FAERS Safety Report 8217544-7 (Version None)
Quarter: 2012Q1

REPORT INFORMATION
  Report Type: 
  Country: None (occurrence: None)
  Receive Date: 20120305
  Receipt Date: 20111024
  Transmission Date: 20120608
  Serious: No
  Sender: FDA-Public Use
  Company Number: 1000024897

PATIENT
  Sex: Male

DRUGS (2)
  1. DALIRESP [Suspect]
     Indication: BRONCHITIS CHRONIC
     Dosage: 500 MCG (500 MCG, 1 IN 1 D), ORAL
     Route: 048
     Dates: start: 20111001, end: 20111023
  2. MULTIPLE MEDICATIONS NOS (MULTIPLE MEDICATIONS NOS) (MULTIPLE MEDICATI [Concomitant]

REACTIONS (2)
  - ABDOMINAL DISTENSION [None]
  - OFF LABEL USE [None]
